FAERS Safety Report 6065539-4 (Version None)
Quarter: 2009Q1

REPORT INFORMATION
  Report Type: 
  Country: None (occurrence: None)
  Receive Date: 20090204
  Receipt Date: 20090122
  Transmission Date: 20090719
  Serious: Yes (Hospitalization)
  Sender: FDA-Public Use
  Company Number: DE-GENENTECH-274940

PATIENT
  Sex: Female

DRUGS (3)
  1. BEVACIZUMAB [Suspect]
     Indication: BREAST CANCER
     Dosage: 900 MG, UNK
     Route: 042
     Dates: start: 20081210, end: 20081210
  2. DOCETAXEL [Suspect]
     Indication: BREAST CANCER
     Dosage: 129 MG, UNK
     Route: 042
     Dates: start: 20081210
  3. GRANISETRON [Concomitant]
     Indication: DRUG USE FOR UNKNOWN INDICATION
     Dosage: UNK
     Dates: start: 20081210

REACTIONS (1)
  - FEBRILE NEUTROPENIA [None]
